FAERS Safety Report 13078523 (Version 2)
Quarter: 2017Q1

REPORT INFORMATION
  Report Type: Spontaneous
  Country: US (occurrence: US)
  Receive Date: 20170102
  Receipt Date: 20170310
  Transmission Date: 20170428
  Serious: No
  Sender: FDA-Public Use
  Company Number: US-TEVA-723457USA

PATIENT
  Sex: Female
  Weight: 74 kg

DRUGS (1)
  1. SYNRIBO [Suspect]
     Active Substance: OMACETAXINE MEPESUCCINATE
     Indication: CHRONIC MYELOID LEUKAEMIA
     Dosage: 4.6 MILLIGRAM DAILY; HOME ADMINISTRATION
     Dates: start: 20161216

REACTIONS (4)
  - Drug ineffective [Not Recovered/Not Resolved]
  - Alopecia [Unknown]
  - Nausea [Unknown]
  - Headache [Unknown]
